FAERS Safety Report 7073754-6 (Version None)
Quarter: 2010Q4

REPORT INFORMATION
  Report Type: 
  Country: None (occurrence: None)
  Receive Date: 20101029
  Receipt Date: 20100810
  Transmission Date: 20110411
  Serious: No
  Sender: FDA-Public Use
  Company Number: A0874913A

PATIENT
  Age: 61 Year
  Sex: Male

DRUGS (8)
  1. ADVAIR DISKUS 100/50 [Suspect]
     Indication: ASTHMA
     Dosage: 1PUFF PER DAY
     Route: 055
     Dates: start: 20091001
  2. ACCOLATE [Suspect]
     Route: 048
     Dates: start: 19820101
  3. LISINOPRIL [Concomitant]
  4. QUININE [Concomitant]
  5. AVODART [Concomitant]
  6. WATER PILL [Concomitant]
  7. ACCOLATE [Concomitant]
  8. ALBUTEROL [Concomitant]

REACTIONS (5)
  - DRUG INTERACTION [None]
  - DYSGEUSIA [None]
  - DYSPNOEA [None]
  - MALAISE [None]
  - VOMITING [None]
